FAERS Safety Report 7607895-9 (Version None)
Quarter: 2011Q3

REPORT INFORMATION
  Report Type: 
  Country: None (occurrence: None)
  Receive Date: 20110714
  Receipt Date: 20110705
  Transmission Date: 20111222
  Serious: No
  Sender: FDA-Public Use
  Company Number: US-BIOGENIDEC-2011BI024973

PATIENT
  Age: 26 Year
  Sex: Female

DRUGS (1)
  1. TYSABRI [Suspect]
     Indication: MULTIPLE SCLEROSIS
     Route: 042
     Dates: start: 20071116

REACTIONS (6)
  - PARAESTHESIA [None]
  - GAIT DISTURBANCE [None]
  - MUSCLE TIGHTNESS [None]
  - PAIN IN EXTREMITY [None]
  - MUSCLE SPASMS [None]
  - BACK PAIN [None]
